FAERS Safety Report 4362278-2 (Version None)
Quarter: 2004Q2

REPORT INFORMATION
  Report Type: 
  Country: None (occurrence: None)
  Receive Date: 20040517
  Receipt Date: 20040507
  Transmission Date: 20050107
  Serious: Yes (Hospitalization)
  Sender: FDA-Public Use
  Company Number: US-JNJFOC-20040501776

PATIENT
  Age: 26 Year
  Sex: Male

DRUGS (1)
  1. DURAGESIC [Suspect]
     Dosage: 100 UG/HR, TRANSDERMAL
     Route: 062
     Dates: start: 20040401

REACTIONS (5)
  - BRAIN DAMAGE [None]
  - COMPARTMENT SYNDROME [None]
  - DEPENDENCE ON RESPIRATOR [None]
  - MEDICATION ERROR [None]
  - PULMONARY THROMBOSIS [None]
